FAERS Safety Report 21151681 (Version 1)
Quarter: 2022Q3

REPORT INFORMATION
  Report Type: Spontaneous
  Country: JP (occurrence: JP)
  Receive Date: 20220730
  Receipt Date: 20220730
  Transmission Date: 20221027
  Serious: Yes (Life-Threatening, Other)
  Sender: FDA-Public Use
  Company Number: JP-UNITED THERAPEUTICS-UNT-2022-016895

PATIENT
  Age: 5 Year
  Sex: Female

DRUGS (1)
  1. UNITUXIN [Suspect]
     Active Substance: DINUTUXIMAB
     Indication: Product used for unknown indication
     Dosage: UNK, CYCLICAL
     Route: 041

REACTIONS (4)
  - Shock [Unknown]
  - Capillary leak syndrome [Unknown]
  - Oxygen saturation decreased [Unknown]
  - Hypoalbuminaemia [Unknown]

NARRATIVE: CASE EVENT DATE: 20220607
